FAERS Safety Report 5472452-X (Version None)
Quarter: 2007Q3

REPORT INFORMATION
  Report Type: 
  Country: None (occurrence: None)
  Receive Date: 20070926
  Receipt Date: 20070917
  Transmission Date: 20080115
  Serious: Yes (Hospitalization, Disabling)
  Sender: FDA-Public Use
  Company Number: TPG2007A00642

PATIENT
  Age: 65 Year
  Sex: Female

DRUGS (7)
  1. ACTOS [Suspect]
     Indication: DIABETES MELLITUS
     Dosage: 45 MG PER ORAL
     Route: 048
     Dates: start: 20060815
  2. GLIMEPIRIDE [Concomitant]
  3. TELMISARTAN (TELMISARTAN) [Concomitant]
  4. HCT (HYDROCHLOROTHIAZIDE) [Concomitant]
  5. RAMIPRIL [Concomitant]
  6. SIMVASTATIN [Concomitant]
  7. METFORMIN HCL [Concomitant]

REACTIONS (2)
  - DIABETIC FOOT [None]
  - LEG AMPUTATION [None]
